FAERS Safety Report 17497183 (Version 1)
Quarter: 2020Q1

REPORT INFORMATION
  Report Type: Spontaneous
  Country: US (occurrence: US)
  Receive Date: 20200304
  Receipt Date: 20200304
  Transmission Date: 20200409
  Serious: No
  Sender: FDA-Public Use
  Company Number: US-BAYER-2020-037018

PATIENT
  Sex: Male

DRUGS (1)
  1. MIRALAX [Suspect]
     Active Substance: POLYETHYLENE GLYCOL 3350
     Indication: CONSTIPATION PROPHYLAXIS
     Dosage: FOLLOWING LABEL DIRECTIONS
     Route: 048

REACTIONS (5)
  - Gastric disorder [Unknown]
  - Dyspepsia [Unknown]
  - Product use in unapproved indication [None]
  - Off label use [None]
  - Abdominal pain upper [Unknown]
